FAERS Safety Report 7065647-5 (Version None)
Quarter: 2010Q4

REPORT INFORMATION
  Report Type: 
  Country: None (occurrence: None)
  Receive Date: 20101027
  Receipt Date: 20101021
  Transmission Date: 20110411
  Serious: Yes (Hospitalization)
  Sender: FDA-Public Use
  Company Number: CHPA2010JP16716

PATIENT
  Age: 38 Year
  Sex: Female

DRUGS (1)
  1. SLOW FE BROWN (NCH) [Suspect]
     Dosage: 50 MG, UNK
     Route: 048

REACTIONS (2)
  - DECREASED APPETITE [None]
  - HEADACHE [None]
